FAERS Safety Report 12605992 (Version 4)
Quarter: 2018Q1

REPORT INFORMATION
  Report Type: Spontaneous
  Country: US (occurrence: US)
  Receive Date: 20160729
  Receipt Date: 20180205
  Transmission Date: 20180508
  Serious: Yes (Other)
  Sender: FDA-Public Use
  Company Number: US-PFIZER INC-2016356868

PATIENT
  Age: 61 Year
  Sex: Male

DRUGS (1)
  1. PRISTIQ EXTENDED-RELEASE [Suspect]
     Active Substance: DESVENLAFAXINE SUCCINATE
     Indication: DEPRESSION
     Dosage: 50 MG, ONCE DAILY
     Dates: start: 20160601

REACTIONS (2)
  - Drug ineffective [Recovered/Resolved]
  - Homicidal ideation [Unknown]

NARRATIVE: CASE EVENT DATE: 20160601
